FAERS Safety Report 9665022 (Version 1)
Quarter: 2013Q4

REPORT INFORMATION
  Report Type: Spontaneous
  Country: US (occurrence: US)
  Receive Date: 20131101
  Receipt Date: 20131101
  Transmission Date: 20140711
  Serious: Yes (Hospitalization)
  Sender: FDA-Public Use
  Company Number: US-PFIZER INC-2013309016

PATIENT
  Age: 14 Year
  Sex: Female

DRUGS (3)
  1. CITALOPRAM [Suspect]
     Dosage: UNK, SINGLE
     Route: 048
  2. HYDROXYZINE PAMOATE [Suspect]
     Dosage: UNK, SINGLE
     Route: 048
  3. BUPROPION [Suspect]
     Dosage: 9 G, SINGLE
     Route: 048

REACTIONS (7)
  - Overdose [Recovering/Resolving]
  - Convulsion [Recovering/Resolving]
  - Electrocardiogram QT prolonged [Recovering/Resolving]
  - Metabolic acidosis [Recovering/Resolving]
  - Electrocardiogram QRS complex [Recovering/Resolving]
  - Hypotension [Recovering/Resolving]
  - Nodal rhythm [Recovering/Resolving]
